FAERS Safety Report 8247494-1 (Version None)
Quarter: 2012Q1

REPORT INFORMATION
  Report Type: 
  Country: None (occurrence: None)
  Receive Date: 20120330
  Receipt Date: 20120316
  Transmission Date: 20120608
  Serious: No
  Sender: FDA-Public Use
  Company Number: US-ROXANE LABORATORIES, INC.-2012-RO-00881RO

PATIENT
  Sex: Female
  Weight: 86 kg

DRUGS (4)
  1. SYNTHROID [Concomitant]
  2. CODEINE SUL TAB [Suspect]
  3. HYDROCHLOROTHIAZIDE [Concomitant]
  4. FLUOXETINE [Concomitant]

REACTIONS (1)
  - HYPERSENSITIVITY [None]
